FAERS Safety Report 5000025-1 (Version None)
Quarter: 2006Q2

REPORT INFORMATION
  Report Type: 
  Country: None (occurrence: None)
  Receive Date: 20060509
  Receipt Date: 20060428
  Transmission Date: 20061013
  Serious: Yes (Death)
  Sender: FDA-Public Use
  Company Number: HQWYE204205JAN06

PATIENT
  Age: 58 Year
  Sex: Female

DRUGS (3)
  1. GEMTUZUMAB OZOGAMICIN (GEMTUZUMAB OZOGAMICIN, INJECTION) [Suspect]
     Indication: MYELODYSPLASTIC SYNDROME
     Dosage: 5 MG/M2 FOR ONE DAY ON DAY 7
     Dates: start: 20051202, end: 20051202
  2. CYTARABINE [Suspect]
     Dosage: 100MG/M2/DAY FOR 10 DAY (DAYS 1 - 10)
     Dates: start: 20051126, end: 20051205
  3. IDARUBICIN HCL [Suspect]
     Dosage: 12 MG/M2/DAY ON DAYS 1, 3, 5
     Dates: start: 20051126, end: 20051130

REACTIONS (3)
  - INFECTION [None]
  - MULTI-ORGAN FAILURE [None]
  - RESPIRATORY FAILURE [None]
